FAERS Safety Report 6690431-1 (Version None)
Quarter: 2010Q2

REPORT INFORMATION
  Report Type: 
  Country: None (occurrence: None)
  Receive Date: 20100421
  Receipt Date: 20090401
  Transmission Date: 20101027
  Serious: No
  Sender: FDA-Public Use
  Company Number: US-ASTRAZENECA-2009UW08179

PATIENT
  Age: 49 Year
  Sex: Male
  Weight: 83.9 kg

DRUGS (7)
  1. CASODEX [Suspect]
     Indication: PROSTATE CANCER
     Route: 048
     Dates: start: 20060101
  2. LUPRON [Suspect]
     Indication: PROSTATE CANCER
     Route: 030
     Dates: start: 20060101
  3. ZOLEDRONIC ACID [Suspect]
     Indication: OSTEOPOROSIS PROPHYLAXIS
     Route: 042
     Dates: start: 20060101
  4. FINASTERIDE [Suspect]
     Indication: PROSTATE CANCER
     Route: 048
     Dates: start: 20060101
  5. ESCITALOPRAM OXALATE [Concomitant]
  6. BUPROPION [Concomitant]
  7. CLONAZEPAM [Concomitant]

REACTIONS (5)
  - FATIGUE [None]
  - HEADACHE [None]
  - ILL-DEFINED DISORDER [None]
  - INJECTION SITE HAEMATOMA [None]
  - PAIN [None]
